FAERS Safety Report 12586544 (Version 1)
Quarter: 2016Q3

REPORT INFORMATION
  Report Type: Spontaneous
  Country: US (occurrence: None)
  Receive Date: 20160722
  Receipt Date: 20160722
  Transmission Date: 20161109
  Serious: Yes (Hospitalization)
  Sender: FDA-Public Use
  Company Number: None

PATIENT
  Age: 73 Year
  Sex: Male
  Weight: 101.6 kg

DRUGS (2)
  1. METRONIDAZOLE. [Suspect]
     Active Substance: METRONIDAZOLE
     Route: 048
     Dates: start: 20160509, end: 20160512
  2. CIPROFLOXACIN. [Suspect]
     Active Substance: CIPROFLOXACIN
     Indication: HYPERSENSITIVITY
     Route: 048
     Dates: start: 20160509, end: 20160512

REACTIONS (3)
  - Pyrexia [None]
  - Rash [None]
  - Fatigue [None]

NARRATIVE: CASE EVENT DATE: 20160511
